FAERS Safety Report 8287600-6 (Version None)
Quarter: 2012Q2

REPORT INFORMATION
  Report Type: 
  Country: None (occurrence: None)
  Receive Date: 20120416
  Receipt Date: 20120409
  Transmission Date: 20120825
  Serious: Yes (Life-Threatening, Hospitalization)
  Sender: FDA-Public Use
  Company Number: PHHY2012JP031111

PATIENT
  Age: 83 Year
  Sex: Female

DRUGS (2)
  1. RIVASTIGMINE [Suspect]
     Indication: DEMENTIA ALZHEIMER'S TYPE
     Dosage: 4.5 MG, UNK
     Route: 062
     Dates: start: 20110912, end: 20111010
  2. RIVASTIGMINE [Suspect]
     Dosage: 9 MG, UNK
     Dates: start: 20111011, end: 20111019

REACTIONS (4)
  - ABDOMINAL PAIN [None]
  - LARGE INTESTINAL OBSTRUCTION [None]
  - VOMITING [None]
  - INFECTIOUS PERITONITIS [None]
